FAERS Safety Report 8646164 (Version 3)
Quarter: 2012Q4

REPORT INFORMATION
  Report Type: 
  Country: US (occurrence: US)
  Receive Date: 20120702
  Receipt Date: 20120907
  Transmission Date: 20130627
  Serious: Yes (Death, Hospitalization)
  Sender: FDA-Public Use
  Company Number: US-ACTELION-A-NJ2012-67774

PATIENT
  Age: 71 Year
  Sex: Female

DRUGS (3)
  1. TRACLEER [Suspect]
     Indication: PULMONARY ARTERIAL HYPERTENSION
     Dosage: 125 mg, bid
     Route: 048
     Dates: start: 200710, end: 20120731
  2. TRACLEER [Suspect]
     Dosage: 62.5 mg, bid
     Route: 048
     Dates: start: 200709, end: 200710
  3. COUMADIN [Concomitant]

REACTIONS (3)
  - Death [Fatal]
  - Hip arthroplasty [Not Recovered/Not Resolved]
  - Fall [Not Recovered/Not Resolved]
